FAERS Safety Report 4929608-1 (Version None)
Quarter: 2006Q1

REPORT INFORMATION
  Report Type: 
  Country: None (occurrence: None)
  Receive Date: 20060223
  Receipt Date: 20060215
  Transmission Date: 20060701
  Serious: Yes (Other)
  Sender: FDA-Public Use
  Company Number: 2006S1000028

PATIENT
  Age: 79 Year
  Sex: Male
  Weight: 93 kg

DRUGS (4)
  1. CUBICIN [Suspect]
     Indication: ENDOCARDITIS ENTEROCOCCAL
     Dosage: 400 MG'Q2H
  2. CUBICIN [Suspect]
     Indication: ENTEROCOCCAL BACTERAEMIA
     Dosage: 400 MG'Q2H
  3. VANCOMYCIN [Concomitant]
  4. GENTAMICIN [Concomitant]

REACTIONS (6)
  - ANOREXIA [None]
  - BACTERAEMIA [None]
  - DISEASE RECURRENCE [None]
  - ENDOCARDITIS [None]
  - FATIGUE [None]
  - HYPERHIDROSIS [None]
